FAERS Safety Report 12909613 (Version 9)
Quarter: 2017Q2

REPORT INFORMATION
  Report Type: Report from Study
  Country: US (occurrence: US)
  Receive Date: 20161104
  Receipt Date: 20170417
  Transmission Date: 20170830
  Serious: Yes (Other)
  Sender: FDA-Public Use
  Company Number: US-009507513-1610USA011839

PATIENT
  Age: 65 Year
  Sex: Male
  Weight: 67.9 kg

DRUGS (12)
  1. PEMBROLIZUMAB. [Suspect]
     Active Substance: PEMBROLIZUMAB
     Indication: LUNG CARCINOMA CELL TYPE UNSPECIFIED STAGE IV
     Dosage: 137 MG, Q3W
     Route: 042
     Dates: start: 20160908
  2. PEMBROLIZUMAB. [Suspect]
     Active Substance: PEMBROLIZUMAB
     Dosage: 100 MG, EVERY3 WEEKS 5TH INFUSION
     Route: 042
     Dates: start: 20161130, end: 20161130
  3. PEMBROLIZUMAB. [Suspect]
     Active Substance: PEMBROLIZUMAB
     Dosage: 100 MG, EVERY 3 WEEKS
     Route: 042
     Dates: start: 20170315, end: 20170315
  4. PEMBROLIZUMAB. [Suspect]
     Active Substance: PEMBROLIZUMAB
     Dosage: 100 MG, EVERY 3 WEEKS 6TH INFUSION
     Route: 042
     Dates: start: 20161221, end: 20161221
  5. RITALIN [Concomitant]
     Active Substance: METHYLPHENIDATE HYDROCHLORIDE
  6. PEMBROLIZUMAB. [Suspect]
     Active Substance: PEMBROLIZUMAB
     Dosage: 100 MG, EVERY 3 WEEKS
     Route: 042
     Dates: start: 20170111, end: 20170111
  7. PROVENTIL [Concomitant]
     Active Substance: ALBUTEROL
  8. INFLUENZA VIRUS VACCINE INACTIVATED (UNSPECIFIED) [Concomitant]
     Active Substance: INFLUENZA VIRUS VACCINE
  9. PEMBROLIZUMAB. [Suspect]
     Active Substance: PEMBROLIZUMAB
     Dosage: 100 MG, EVERY 3 WEEKS
     Route: 042
     Dates: start: 20170222, end: 20170222
  10. PREDNISONE. [Concomitant]
     Active Substance: PREDNISONE
     Indication: CHRONIC OBSTRUCTIVE PULMONARY DISEASE
     Dosage: 10 MG, QD
     Route: 048
  11. PEMBROLIZUMAB. [Suspect]
     Active Substance: PEMBROLIZUMAB
     Dosage: 100 MG, EVERY 3 WEEKS 3RD INFUSION
     Route: 042
     Dates: start: 20161109, end: 20161109
  12. PEMBROLIZUMAB. [Suspect]
     Active Substance: PEMBROLIZUMAB
     Indication: NON-SMALL CELL LUNG CANCER
     Dosage: 100 MG, EVERY 3 WEEKS
     Route: 042
     Dates: start: 20160818, end: 20160818

REACTIONS (24)
  - Malaise [Unknown]
  - Blood thyroid stimulating hormone increased [Unknown]
  - Lung infection [Recovering/Resolving]
  - Bronchitis [Recovered/Resolved]
  - Chronic obstructive pulmonary disease [Recovered/Resolved]
  - Prostatic specific antigen increased [Not Recovered/Not Resolved]
  - Decreased activity [Not Recovered/Not Resolved]
  - Asthenia [Not Recovered/Not Resolved]
  - Prostatomegaly [Unknown]
  - Nausea [Not Recovered/Not Resolved]
  - Dyspnoea [Recovering/Resolving]
  - Arthralgia [Recovering/Resolving]
  - Deafness [Not Recovered/Not Resolved]
  - Frustration tolerance decreased [Not Recovered/Not Resolved]
  - Decreased appetite [Recovering/Resolving]
  - Fatigue [Not Recovered/Not Resolved]
  - Malaise [Unknown]
  - Malaise [Unknown]
  - Neuropathy peripheral [Not Recovered/Not Resolved]
  - Drug effect incomplete [Unknown]
  - Dysphonia [Unknown]
  - Hypothyroidism [Recovered/Resolved]
  - Thyroid hormones decreased [Unknown]
  - Respiratory tract infection [Recovered/Resolved]

NARRATIVE: CASE EVENT DATE: 2016
